FAERS Safety Report 4512797-0 (Version None)
Quarter: 2004Q4

REPORT INFORMATION
  Report Type: 
  Country: None (occurrence: None)
  Receive Date: 20041119
  Receipt Date: 20041119
  Transmission Date: 20050328
  Serious: Yes (Other)
  Sender: FDA-Public Use
  Company Number: None

PATIENT
  Sex: Female

DRUGS (3)
  1. OXYCONTIN [Suspect]
     Indication: ARTHRALGIA
     Dosage: 80 MG 2 TID
     Dates: start: 20021119
  2. OXYCONTIN [Suspect]
     Indication: BACK PAIN
     Dosage: 80 MG 2 TID
     Dates: start: 20021119
  3. OXYCONTIN [Suspect]
     Indication: PAIN IN EXTREMITY
     Dosage: 80 MG 2 TID
     Dates: start: 20021119

REACTIONS (4)
  - DIFFICULTY IN WALKING [None]
  - DRUG INEFFECTIVE [None]
  - PAIN EXACERBATED [None]
  - STOMACH DISCOMFORT [None]
